FAERS Safety Report 9680339 (Version 1)
Quarter: 2013Q4

REPORT INFORMATION
  Report Type: Report from Study
  Country: CA (occurrence: CA)
  Receive Date: 20131111
  Receipt Date: 20131111
  Transmission Date: 20140711
  Serious: Yes (Hospitalization)
  Sender: FDA-Public Use
  Company Number: CA-JNJFOC-20131103081

PATIENT
  Age: 47 Year
  Sex: Female

DRUGS (2)
  1. EVICEL [Suspect]
     Indication: INTESTINAL ANASTOMOSIS
     Route: 061
     Dates: start: 20130423
  2. ALL OTHER THERAPEUTIC PRODUCT [Concomitant]
     Indication: INTESTINAL ANASTOMOSIS
     Route: 061
     Dates: start: 20130423

REACTIONS (3)
  - Wound complication [Recovered/Resolved]
  - Anastomotic leak [Recovered/Resolved]
  - Pelvic abscess [Recovered/Resolved]
